FAERS Safety Report 19173345 (Version 3)
Quarter: 2021Q2

REPORT INFORMATION
  Report Type: Report from Study
  Country: None (occurrence: US)
  Receive Date: 20210423
  Receipt Date: 20210518
  Transmission Date: 20210717
  Serious: Yes (Hospitalization)
  Sender: FDA-Public Use
  Company Number: US-ABBVIE-21K-163-3870463-00

PATIENT
  Age: 73 Year
  Sex: Female
  Weight: 124.85 kg

DRUGS (3)
  1. SKYRIZI [Suspect]
     Active Substance: RISANKIZUMAB-RZAA
     Indication: PSORIASIS
     Route: 058
     Dates: start: 20201112
  2. COVID?19 VACCINE NOS. [Concomitant]
     Active Substance: COVID-19 VACCINE NOS
     Dosage: MODERNA
     Route: 030
     Dates: start: 20210413, end: 20210413
  3. COVID?19 VACCINE NOS. [Concomitant]
     Active Substance: COVID-19 VACCINE NOS
     Indication: COVID-19 IMMUNISATION
     Dosage: MODERNA
     Route: 030
     Dates: start: 20210326, end: 20210326

REACTIONS (7)
  - Hepatic cirrhosis [Recovered/Resolved]
  - Constipation [Recovered/Resolved]
  - Gait disturbance [Unknown]
  - Hepatitis [Unknown]
  - Gastrointestinal hypomotility [Unknown]
  - Confusional state [Unknown]
  - Oxygen therapy [Unknown]

NARRATIVE: CASE EVENT DATE: 202104
